FAERS Safety Report 7080340-0 (Version None)
Quarter: 2010Q4

REPORT INFORMATION
  Report Type: 
  Country: None (occurrence: None)
  Receive Date: 20101022
  Receipt Date: 20101015
  Transmission Date: 20110411
  Serious: Yes (Death, Other)
  Sender: FDA-Public Use
  Company Number: 2009JP000515

PATIENT
  Age: 53 Year
  Sex: Female

DRUGS (7)
  1. PROGRAF [Suspect]
     Indication: CORD BLOOD TRANSPLANT THERAPY
     Dosage: 0.02 MG/KG, /D
  2. METHOTREXATE [Concomitant]
  3. FLUDARABINE PHOSPHATE [Concomitant]
  4. L-PAM (MELPHALAN) [Concomitant]
  5. METHYLPREDNISOLONE [Concomitant]
  6. MYCOPHENOLATE MOFETIL [Concomitant]
  7. FOSCARNET [Concomitant]

REACTIONS (7)
  - ACUTE GRAFT VERSUS HOST DISEASE IN INTESTINE [None]
  - CYTOMEGALOVIRUS VIRAEMIA [None]
  - ENCEPHALITIS CYTOMEGALOVIRUS [None]
  - ENCEPHALITIS HERPES [None]
  - GENERAL PHYSICAL HEALTH DETERIORATION [None]
  - HEPATIC FUNCTION ABNORMAL [None]
  - LEUKOENCEPHALOPATHY [None]
